FAERS Safety Report 19612834 (Version 1)
Quarter: 2021Q3

REPORT INFORMATION
  Report Type: Spontaneous
  Country: US (occurrence: US)
  Receive Date: 20210727
  Receipt Date: 20210727
  Transmission Date: 20211014
  Serious: Yes (Other)
  Sender: FDA-Public Use
  Company Number: US-SA-2021SA243293

PATIENT
  Age: 48 Year
  Sex: Male

DRUGS (2)
  1. ZANTAC [Suspect]
     Active Substance: RANITIDINE HYDROCHLORIDE
     Indication: ABDOMINAL DISCOMFORT
  2. ZANTAC [Suspect]
     Active Substance: RANITIDINE HYDROCHLORIDE
     Indication: DYSPEPSIA
     Dosage: 75 MG, QW
     Dates: start: 201307, end: 201912

REACTIONS (3)
  - Colorectal cancer stage IV [Recovering/Resolving]
  - Hepatic cancer stage IV [Recovering/Resolving]
  - Lung carcinoma cell type unspecified stage IV [Recovering/Resolving]

NARRATIVE: CASE EVENT DATE: 20181001
